FAERS Safety Report 4616963-5 (Version None)
Quarter: 2005Q1

REPORT INFORMATION
  Report Type: 
  Country: None (occurrence: None)
  Receive Date: 20050318
  Receipt Date: 20050307
  Transmission Date: 20050727
  Serious: Yes (Hospitalization)
  Sender: FDA-Public Use
  Company Number: HQWYE876808MAR05

PATIENT
  Age: 25 Year
  Sex: Male

DRUGS (6)
  1. RAPAMUNE [Suspect]
     Indication: PROPHYLAXIS AGAINST TRANSPLANT REJECTION
     Dosage: 4 MG 1X PER 1 DAY, ORAL
     Route: 048
     Dates: start: 20041203
  2. ATENOLOL [Concomitant]
  3. NIFEDIPINE [Concomitant]
  4. RANITIDINE [Concomitant]
  5. BACTRIM [Concomitant]
  6. PREDNISONE [Concomitant]

REACTIONS (1)
  - KIDNEY TRANSPLANT REJECTION [None]
